FAERS Safety Report 24904472 (Version 1)
Quarter: 2025Q1

REPORT INFORMATION
  Report Type: Other
  Country: GB (occurrence: GB)
  Receive Date: 20250130
  Receipt Date: 20250130
  Transmission Date: 20250409
  Serious: Yes (Disabling, Other)
  Sender: GLENMARK
  Company Number: GB-MHRA-TPP15036173C10295442YC1737735407004

PATIENT

DRUGS (4)
  1. RIZATRIPTAN BENZOATE [Suspect]
     Active Substance: RIZATRIPTAN BENZOATE
     Indication: Ill-defined disorder
     Route: 065
     Dates: start: 20250124
  2. PENICILLIN V [Concomitant]
     Active Substance: PENICILLIN V
     Indication: Ill-defined disorder
     Dosage: 2 DOSAGE FORM, QID (2 FOUR TIMES DAILY  )
     Route: 065
     Dates: start: 20250110, end: 20250117
  3. PROCHLORPERAZINE [Concomitant]
     Active Substance: PROCHLORPERAZINE
     Indication: Ill-defined disorder
     Dosage: 1 DOSAGE FORM, TID (TAKE ONE THREE TIMES DAILY  )
     Route: 065
     Dates: start: 20250124
  4. RIZATRIPTAN [Concomitant]
     Active Substance: RIZATRIPTAN
     Indication: Ill-defined disorder
     Route: 065
     Dates: start: 20250124

REACTIONS (4)
  - Arthralgia [Recovering/Resolving]
  - Malaise [Unknown]
  - Pain [Unknown]
  - Myalgia [Unknown]

NARRATIVE: CASE EVENT DATE: 20250124
